FAERS Safety Report 25858222 (Version 1)
Quarter: 2025Q3

REPORT INFORMATION
  Report Type: Spontaneous
  Country: US (occurrence: US)
  Receive Date: 20250929
  Receipt Date: 20250929
  Transmission Date: 20251021
  Serious: Yes (Hospitalization, Other)
  Sender: ASTELLAS
  Company Number: US-ASTELLAS-2025-AER-052600

PATIENT
  Age: 68 Year
  Sex: Male

DRUGS (3)
  1. TACROLIMUS [Suspect]
     Active Substance: TACROLIMUS
     Indication: Allogenic stem cell transplantation
     Route: 065
  2. SIROLIMUS [Concomitant]
     Active Substance: SIROLIMUS
     Indication: Allogenic stem cell transplantation
     Route: 065
  3. PREDNISONE [Concomitant]
     Active Substance: PREDNISONE
     Indication: Allogenic stem cell transplantation
     Route: 065

REACTIONS (6)
  - Pneumonia [Recovering/Resolving]
  - Pneumatosis intestinalis [Recovering/Resolving]
  - Norovirus infection [Recovering/Resolving]
  - Cytomegalovirus viraemia [Recovering/Resolving]
  - Oesophageal candidiasis [Recovering/Resolving]
  - Off label use [Unknown]
